FAERS Safety Report 10438091 (Version 4)
Quarter: 2015Q1

REPORT INFORMATION
  Report Type: Spontaneous
  Country: US (occurrence: None)
  Receive Date: 20140904
  Receipt Date: 20150306
  Transmission Date: 20150720
  Serious: Yes (Other)
  Sender: FDA-Public Use
  Company Number: ADR-2014-01574

PATIENT
  Age: 13 Year
  Sex: Male

DRUGS (2)
  1. CLONAZEPAM. [Suspect]
     Active Substance: CLONAZEPAM
  2. LIORESAL [Suspect]
     Active Substance: BACLOFEN
     Indication: MUSCLE SPASTICITY

REACTIONS (8)
  - Device dislocation [None]
  - Dyskinesia [None]
  - Spinal laminectomy [None]
  - Underdose [None]
  - Tachycardia [None]
  - Blood creatine phosphokinase [None]
  - Blood creatine phosphokinase increased [None]
  - Drug withdrawal syndrome [None]

NARRATIVE: CASE EVENT DATE: 20140823
